FAERS Safety Report 5357683-1 (Version None)
Quarter: 2007Q2

REPORT INFORMATION
  Report Type: 
  Country: None (occurrence: None)
  Receive Date: 20070614
  Receipt Date: 20070605
  Transmission Date: 20071010
  Serious: Yes (Other)
  Sender: FDA-Public Use
  Company Number: US-PFIZER INC-2007046876

PATIENT
  Sex: Female
  Weight: 84.09 kg

DRUGS (3)
  1. LIPITOR [Suspect]
     Indication: BLOOD CHOLESTEROL INCREASED
     Dates: start: 19990101, end: 20070501
  2. LEXAPRO [Concomitant]
     Indication: DEPRESSION
  3. THYROID TAB [Concomitant]

REACTIONS (2)
  - INTERVERTEBRAL DISC PROTRUSION [None]
  - MYALGIA [None]
